FAERS Safety Report 24163277 (Version 1)
Quarter: 2024Q3

REPORT INFORMATION
  Report Type: Spontaneous
  Country: RU (occurrence: RU)
  Receive Date: 20240801
  Receipt Date: 20240801
  Transmission Date: 20241017
  Serious: Yes (Other)
  Sender: MERCK
  Company Number: RU-009507513-2407RUS015946

PATIENT
  Age: 47 Year
  Sex: Female
  Weight: 99 kg

DRUGS (1)
  1. DELSTRIGO [Suspect]
     Active Substance: DORAVIRINE\LAMIVUDINE\TENOFOVIR DISOPROXIL FUMARATE
     Indication: HIV infection
     Dosage: 645 MILLIGRAM ONCE A DAY
     Route: 048
     Dates: start: 20240123, end: 20240718

REACTIONS (1)
  - Dermatitis allergic [Unknown]

NARRATIVE: CASE EVENT DATE: 20240615
